FAERS Safety Report 5741739-5 (Version None)
Quarter: 2008Q2

REPORT INFORMATION
  Report Type: 
  Country: None (occurrence: None)
  Receive Date: 20080519
  Receipt Date: 20070430
  Transmission Date: 20081010
  Serious: No
  Sender: FDA-Public Use
  Company Number: US-BAYER-US-2007-015205

PATIENT
  Age: 83 Year
  Sex: Male
  Weight: 61 kg

DRUGS (2)
  1. ULTRAVIST 300 [Suspect]
     Indication: COMPUTERISED TOMOGRAM ABDOMEN
     Dosage: UNIT DOSE: 134 ML
     Route: 042
     Dates: start: 20070430, end: 20070430
  2. READI-CAT [Concomitant]

REACTIONS (2)
  - EYELID OEDEMA [None]
  - RASH MACULAR [None]
